FAERS Safety Report 8441269-6 (Version None)
Quarter: 2012Q2

REPORT INFORMATION
  Report Type: 
  Country: None (occurrence: None)
  Receive Date: 20120615
  Receipt Date: 20110805
  Transmission Date: 20120825
  Serious: No
  Sender: FDA-Public Use
  Company Number: US-NOVEN-11US002933

PATIENT

DRUGS (1)
  1. DAYTRANA [Suspect]
     Dosage: 10 MG, QD
     Route: 062
     Dates: start: 20110804

REACTIONS (3)
  - ACCIDENTAL EXPOSURE [None]
  - PRODUCT QUALITY ISSUE [None]
  - FEELING JITTERY [None]
